FAERS Safety Report 4354221-7 (Version None)
Quarter: 2004Q2

REPORT INFORMATION
  Report Type: 
  Country: None (occurrence: None)
  Receive Date: 20040506
  Receipt Date: 20040504
  Transmission Date: 20050107
  Serious: Yes (Other)
  Sender: FDA-Public Use
  Company Number: US-GLAXOSMITHKLINE-A0509451A

PATIENT
  Sex: Female

DRUGS (2)
  1. WELLBUTRIN [Suspect]
     Indication: DEPRESSION
     Dosage: 400MG PER DAY
     Route: 048
  2. UNKNOWN MEDICATION [Concomitant]
     Indication: DEPRESSION

REACTIONS (2)
  - CONVULSION [None]
  - MEDICATION ERROR [None]
